FAERS Safety Report 4709862-1 (Version None)
Quarter: 2005Q3

REPORT INFORMATION
  Report Type: 
  Country: None (occurrence: None)
  Receive Date: 20050708
  Receipt Date: 20050314
  Transmission Date: 20060218
  Serious: Yes (Other)
  Sender: FDA-Public Use
  Company Number: US-GLAXOSMITHKLINE-A0549552A

PATIENT
  Age: 53 Year
  Sex: Male
  Weight: 100 kg

DRUGS (1)
  1. PHAZYME ULTRA STRENGTH SOFTGELS [Suspect]
     Route: 048
     Dates: start: 20050312, end: 20050312

REACTIONS (6)
  - HYPERAESTHESIA [None]
  - NEUROPATHY [None]
  - PAIN IN EXTREMITY [None]
  - PAIN IN JAW [None]
  - PARAESTHESIA [None]
  - PHARMACEUTICAL PRODUCT COMPLAINT [None]
